FAERS Safety Report 13205278 (Version 1)
Quarter: 2017Q1

REPORT INFORMATION
  Report Type: Spontaneous
  Country: CN (occurrence: CN)
  Receive Date: 20170209
  Receipt Date: 20170209
  Transmission Date: 20170428
  Serious: Yes (Hospitalization, Disabling, Other)
  Sender: FDA-Public Use
  Company Number: CN-PFIZER INC-2017053601

PATIENT
  Age: 36 Year
  Sex: Female
  Weight: 55 kg

DRUGS (4)
  1. CYTOSAR [Suspect]
     Active Substance: CYTARABINE
     Indication: ACUTE LEUKAEMIA
     Dosage: 150 MG, 1X/DAY
     Route: 041
     Dates: start: 20161206, end: 20161212
  2. SHENQIFUZHENG [Concomitant]
     Indication: ADJUVANT THERAPY
     Dosage: 250 ML, 1X/DAY
     Route: 041
  3. IDARUBICIN HYDROCHLORIDE. [Concomitant]
     Active Substance: IDARUBICIN HYDROCHLORIDE
     Indication: CHEMOTHERAPY
     Dosage: 20 MG, 1X/DAY (D1)
     Route: 041
     Dates: start: 20161206
  4. IDARUBICIN HYDROCHLORIDE. [Concomitant]
     Active Substance: IDARUBICIN HYDROCHLORIDE
     Dosage: 10 MG, 1X/DAY (D2 TO D3)
     Route: 041
     Dates: start: 20161207, end: 20161208

REACTIONS (5)
  - Epistaxis [Unknown]
  - Cough [Unknown]
  - Bone marrow failure [Unknown]
  - Infection [Unknown]
  - Sputum abnormal [Unknown]

NARRATIVE: CASE EVENT DATE: 20161213
